FAERS Safety Report 10137831 (Version 1)
Quarter: 2014Q2

REPORT INFORMATION
  Report Type: Spontaneous
  Country: US (occurrence: US)
  Receive Date: 20140429
  Receipt Date: 20140429
  Transmission Date: 20141212
  Serious: No
  Sender: FDA-Public Use
  Company Number: US-MYLANLABS-2013S1015654

PATIENT
  Age: 62 Year
  Sex: Female
  Weight: 80.74 kg

DRUGS (1)
  1. NITROFURANTOIN MONOHYDRATE/MACROCRYSTALS CAPSULES [Suspect]
     Indication: URINARY TRACT INFECTION
     Route: 048
     Dates: start: 201306

REACTIONS (2)
  - Choking sensation [Not Recovered/Not Resolved]
  - Foreign body [Not Recovered/Not Resolved]
